FAERS Safety Report 8174372-9 (Version None)
Quarter: 2012Q1

REPORT INFORMATION
  Report Type: 
  Country: None (occurrence: None)
  Receive Date: 20120229
  Receipt Date: 20120222
  Transmission Date: 20120608
  Serious: Yes (Hospitalization)
  Sender: FDA-Public Use
  Company Number: SE-JNJFOC-20120202445

PATIENT
  Age: 65 Year
  Sex: Male

DRUGS (9)
  1. HUMIRA [Suspect]
     Indication: RHEUMATOID ARTHRITIS
     Route: 058
     Dates: start: 20070320, end: 20100302
  2. PREDNISOLONE [Concomitant]
     Dates: start: 19990909, end: 20070320
  3. REMICADE [Suspect]
     Indication: RHEUMATOID ARTHRITIS
     Route: 042
     Dates: start: 20010403, end: 20070215
  4. ENBREL [Suspect]
     Indication: RHEUMATOID ARTHRITIS
     Route: 058
     Dates: start: 19990909, end: 20010403
  5. METHOTREXATE [Suspect]
     Indication: RHEUMATOID ARTHRITIS
     Dates: start: 19990909, end: 20070320
  6. RITUXAN [Concomitant]
     Indication: PRODUCT USED FOR UNKNOWN INDICATION
     Route: 042
     Dates: start: 20100614
  7. PREDNISOLONE [Concomitant]
     Dates: start: 20071023, end: 20090916
  8. NSAID [Concomitant]
  9. METHOTREXATE [Suspect]
     Dates: start: 20090210, end: 20110815

REACTIONS (1)
  - B-CELL LYMPHOMA [None]
